FAERS Safety Report 7133173-0 (Version None)
Quarter: 2010Q4

REPORT INFORMATION
  Report Type: 
  Country: None (occurrence: None)
  Receive Date: 20101202
  Receipt Date: 20101124
  Transmission Date: 20110411
  Serious: Yes (Death, Hospitalization)
  Sender: FDA-Public Use
  Company Number: IT-BAXTER-2010BH028591

PATIENT
  Age: 59 Year
  Sex: Female

DRUGS (2)
  1. CYCLOPHOSPHAMIDE [Suspect]
     Indication: BREAST CANCER METASTATIC
     Route: 042
     Dates: start: 20100507, end: 20100901
  2. MYOCET [Suspect]
     Indication: BREAST CANCER METASTATIC
     Route: 042
     Dates: start: 20100507, end: 20100901

REACTIONS (5)
  - ASTHENIA [None]
  - CARDIAC FAILURE ACUTE [None]
  - COUGH [None]
  - PULMONARY EMBOLISM [None]
  - TACHYCARDIA [None]
